FAERS Safety Report 12734749 (Version 1)
Quarter: 2016Q3

REPORT INFORMATION
  Report Type: Spontaneous
  Country: US (occurrence: US)
  Receive Date: 20160913
  Receipt Date: 20160913
  Transmission Date: 20161109
  Serious: Yes (Other)
  Sender: FDA-Public Use
  Company Number: US-ABBVIE-16K-163-1721671-00

PATIENT

DRUGS (13)
  1. HUMIRA [Suspect]
     Active Substance: ADALIMUMAB
     Indication: CROHN^S DISEASE
     Route: 058
  2. CIMZIA [Suspect]
     Active Substance: CERTOLIZUMAB PEGOL
     Indication: CROHN^S DISEASE
     Route: 065
  3. REMICADE [Suspect]
     Active Substance: INFLIXIMAB
     Indication: CROHN^S DISEASE
     Route: 065
  4. IMURAN [Concomitant]
     Active Substance: AZATHIOPRINE
     Indication: ABDOMINAL ABSCESS
  5. IMURAN [Concomitant]
     Active Substance: AZATHIOPRINE
     Indication: GASTROINTESTINAL FISTULA
  6. ENTYVIO [Suspect]
     Active Substance: VEDOLIZUMAB
     Indication: CROHN^S DISEASE
     Route: 065
     Dates: start: 2014
  7. ENTYVIO [Suspect]
     Active Substance: VEDOLIZUMAB
     Indication: GASTROINTESTINAL FISTULA
  8. ENTYVIO [Suspect]
     Active Substance: VEDOLIZUMAB
     Indication: ABDOMINAL ABSCESS
  9. STELARA [Suspect]
     Active Substance: USTEKINUMAB
     Indication: CROHN^S DISEASE
     Route: 065
  10. AUGMENTIN [Concomitant]
     Active Substance: AMOXICILLIN\CLAVULANATE POTASSIUM
     Indication: ABDOMINAL ABSCESS
  11. FLAGYL [Concomitant]
     Active Substance: METRONIDAZOLE\METRONIDAZOLE HYDROCHLORIDE
     Indication: ABDOMINAL ABSCESS
  12. AUGMENTIN [Concomitant]
     Active Substance: AMOXICILLIN\CLAVULANATE POTASSIUM
     Indication: GASTROINTESTINAL FISTULA
  13. FLAGYL [Concomitant]
     Active Substance: METRONIDAZOLE\METRONIDAZOLE HYDROCHLORIDE
     Indication: GASTROINTESTINAL FISTULA

REACTIONS (5)
  - Abscess intestinal [Unknown]
  - Drug ineffective [Unknown]
  - Gastrointestinal fistula [Not Recovered/Not Resolved]
  - Colectomy [Unknown]
  - Enterostomy closure [Unknown]

NARRATIVE: CASE EVENT DATE: 2014
